FAERS Safety Report 4522149-5 (Version None)
Quarter: 2004Q4

REPORT INFORMATION
  Report Type: 
  Country: None (occurrence: None)
  Receive Date: 20041207
  Receipt Date: 20041122
  Transmission Date: 20050328
  Serious: Yes (Death)
  Sender: FDA-Public Use
  Company Number: USA041184443

PATIENT
  Age: 55 Year
  Sex: Male

DRUGS (8)
  1. ZYPREXA [Suspect]
     Indication: BIPOLAR DISORDER
     Dosage: 10 MG/M2 DAY
  2. ALUPENT [Concomitant]
  3. IMIPRAM TAB [Concomitant]
  4. NEURONTIN (GABAPENTIN PFIZER) [Concomitant]
  5. RISPERDAL [Concomitant]
  6. COGENTIN [Concomitant]
  7. DARVOCET-N 100 [Concomitant]
  8. NORVASC [Concomitant]

REACTIONS (1)
  - OVERDOSE [None]
